FAERS Safety Report 9691193 (Version 1)
Quarter: 2013Q4

REPORT INFORMATION
  Report Type: Spontaneous
  Country: GB (occurrence: GB)
  Receive Date: 20131115
  Receipt Date: 20131115
  Transmission Date: 20140711
  Serious: Yes (Other)
  Sender: FDA-Public Use
  Company Number: GB-009507513-1311GBR005692

PATIENT
  Age: 72 Year
  Sex: Female
  Weight: 60.32 kg

DRUGS (7)
  1. ALENDRONATE SODIUM [Suspect]
     Dosage: 1 TOTAL
     Route: 048
     Dates: start: 20121130
  2. ADCAL-D3 [Concomitant]
  3. ASPIRIN [Concomitant]
  4. ATENOLOL [Concomitant]
     Dosage: 25 MG, UNK
  5. ATORVASTATIN [Concomitant]
     Dosage: 40 MG, UNK
  6. HERITAGE OSTEOGUARD [Concomitant]
  7. RAMIPRIL [Concomitant]
     Dosage: 2.5 MG, UNK

REACTIONS (5)
  - Jaundice [Recovered/Resolved]
  - Renal pain [Recovered/Resolved with Sequelae]
  - Fatigue [Recovered/Resolved with Sequelae]
  - Malaise [Recovered/Resolved with Sequelae]
  - Nausea [Recovered/Resolved with Sequelae]
